FAERS Safety Report 4690172-6 (Version None)
Quarter: 2005Q2

REPORT INFORMATION
  Report Type: 
  Country: None (occurrence: None)
  Receive Date: 20050613
  Receipt Date: 20050603
  Transmission Date: 20051028
  Serious: Yes (Other)
  Sender: FDA-Public Use
  Company Number: 2005-05-1727

PATIENT
  Age: 50 Year
  Sex: Female

DRUGS (1)
  1. CELESTONE TAB [Suspect]
     Dosage: INTRAMUSCULAR; 1 DOSE(S)
     Route: 030

REACTIONS (4)
  - DIZZINESS [None]
  - FALL [None]
  - LOSS OF CONSCIOUSNESS [None]
  - SYNCOPE [None]
